FAERS Safety Report 10177854 (Version 2)
Quarter: 2014Q2

REPORT INFORMATION
  Report Type: Spontaneous
  Country: DE (occurrence: DE)
  Receive Date: 20140516
  Receipt Date: 20140516
  Transmission Date: 20141212
  Serious: Yes (Life-Threatening)
  Sender: FDA-Public Use
  Company Number: DE-SA-2014SA032174

PATIENT
  Age: 72 Year
  Sex: Female
  Weight: 80 kg

DRUGS (2)
  1. LANTUS [Suspect]
     Indication: TYPE 2 DIABETES MELLITUS
     Route: 058
  2. MARCOUMAR [Concomitant]

REACTIONS (3)
  - Blood glucose decreased [Recovered/Resolved]
  - Contusion [Recovered/Resolved]
  - Fall [Unknown]
